FAERS Safety Report 19450410 (Version 1)
Quarter: 2021Q2

REPORT INFORMATION
  Report Type: Spontaneous
  Country: DE (occurrence: DE)
  Receive Date: 20210622
  Receipt Date: 20210622
  Transmission Date: 20210717
  Serious: Yes (Hospitalization, Other)
  Sender: FDA-Public Use
  Company Number: DE-TEIKOKU PHARMA USA-TPU2021-00644

PATIENT
  Age: 46 Year
  Sex: Female
  Weight: 60 kg

DRUGS (1)
  1. VERSATIS [Suspect]
     Active Substance: LIDOCAINE
     Indication: HERPES ZOSTER
     Route: 062
     Dates: start: 20090101, end: 20090101

REACTIONS (16)
  - Syncope [Recovering/Resolving]
  - Restlessness [Recovering/Resolving]
  - Muscle spasms [Recovering/Resolving]
  - Anaphylactic shock [Recovering/Resolving]
  - Tinnitus [Recovering/Resolving]
  - Hyperhidrosis [Recovering/Resolving]
  - Visual impairment [Recovering/Resolving]
  - Tremor [Recovering/Resolving]
  - Peripheral coldness [Recovering/Resolving]
  - Ear pain [Recovering/Resolving]
  - Hyperventilation [Recovering/Resolving]
  - Respiratory distress [Recovering/Resolving]
  - Laryngeal discomfort [Recovering/Resolving]
  - Language disorder [Recovering/Resolving]
  - Heart rate irregular [Recovering/Resolving]
  - Feeling hot [Recovering/Resolving]

NARRATIVE: CASE EVENT DATE: 20090101
